FAERS Safety Report 23477804 (Version 1)
Quarter: 2024Q1

REPORT INFORMATION
  Report Type: Report from Study
  Country: US (occurrence: US)
  Receive Date: 20240204
  Receipt Date: 20240204
  Transmission Date: 20240410
  Serious: No
  Sender: FDA-Public Use
  Company Number: US-EXELIXIS-CABO-23066817

PATIENT
  Age: 53 Year
  Sex: Female
  Weight: 68.481 kg

DRUGS (1)
  1. CABOMETYX [Suspect]
     Active Substance: CABOZANTINIB S-MALATE
     Indication: Renal cancer
     Dosage: 40 MG, QD
     Route: 048
     Dates: start: 20230616

REACTIONS (8)
  - Blister [Recovering/Resolving]
  - Peripheral swelling [Unknown]
  - Skin discolouration [Unknown]
  - Rash erythematous [Recovering/Resolving]
  - Skin exfoliation [Unknown]
  - Alopecia [Unknown]
  - Alanine aminotransferase increased [Unknown]
  - Rash [Unknown]

NARRATIVE: CASE EVENT DATE: 20230805
